FAERS Safety Report 6591336-7 (Version None)
Quarter: 2010Q1

REPORT INFORMATION
  Report Type: 
  Country: None (occurrence: None)
  Receive Date: 20100219
  Receipt Date: 20100129
  Transmission Date: 20100710
  Serious: Yes (Life-Threatening)
  Sender: FDA-Public Use
  Company Number: JP-PFIZER INC-2010021225

PATIENT
  Age: 36 Year
  Sex: Female
  Weight: 46.3 kg

DRUGS (3)
  1. SILDENAFIL CITRATE [Suspect]
     Indication: PULMONARY ARTERIAL HYPERTENSION
     Dosage: UNK
     Route: 048
     Dates: start: 20040601, end: 20050624
  2. TRACLEER [Suspect]
     Indication: PULMONARY ARTERIAL HYPERTENSION
     Dosage: UNK
     Route: 048
     Dates: start: 20050622, end: 20050628
  3. FLOLAN [Concomitant]
     Dosage: UNK
     Route: 042

REACTIONS (2)
  - HEADACHE [None]
  - PLATELET COUNT DECREASED [None]
